FAERS Safety Report 8392733 (Version 5)
Quarter: 2012Q4

REPORT INFORMATION
  Report Type: 
  Country: US (occurrence: US)
  Receive Date: 20120206
  Receipt Date: 20121001
  Transmission Date: 20130627
  Serious: Yes (Other)
  Sender: FDA-Public Use
  Company Number: US-ASTRAZENECA-2012SE05432

PATIENT
  Age: 55 Year
  Sex: Female
  Weight: 74.8 kg

DRUGS (63)
  1. SYMBICORT [Suspect]
     Indication: CHRONIC OBSTRUCTIVE PULMONARY DISEASE
     Dosage: 160/4.5 MCG , 2 PUFF TWICE DAILY
     Route: 055
  2. SYMBICORT [Suspect]
     Indication: BRONCHITIS
     Dosage: 160/4.5 MCG , 2 PUFF TWICE DAILY
     Route: 055
  3. SYMBICORT [Suspect]
     Indication: ASTHMA
     Dosage: 160/4.5 MCG , 2 PUFF TWICE DAILY
     Route: 055
  4. SYMBICORT [Suspect]
     Indication: CHRONIC OBSTRUCTIVE PULMONARY DISEASE
     Dosage: 160/4.5 MCG , 1 PUFF TWICE DAILY
     Route: 055
  5. SYMBICORT [Suspect]
     Indication: BRONCHITIS
     Dosage: 160/4.5 MCG , 1 PUFF TWICE DAILY
     Route: 055
  6. SYMBICORT [Suspect]
     Indication: ASTHMA
     Dosage: 160/4.5 MCG , 1 PUFF TWICE DAILY
     Route: 055
  7. SYMBICORT [Suspect]
     Indication: CHRONIC OBSTRUCTIVE PULMONARY DISEASE
     Dosage: 160/4.5 MCG , 1 PUFF TWICE DAILY
     Route: 055
  8. SYMBICORT [Suspect]
     Indication: BRONCHITIS
     Dosage: 160/4.5 MCG , 1 PUFF TWICE DAILY
     Route: 055
  9. SYMBICORT [Suspect]
     Indication: ASTHMA
     Dosage: 160/4.5 MCG , 1 PUFF TWICE DAILY
     Route: 055
  10. SYMBICORT [Suspect]
     Indication: CHRONIC OBSTRUCTIVE PULMONARY DISEASE
     Dosage: 160/4.5 MCG , 1 PUFF TWICE DAILY
     Route: 055
  11. SYMBICORT [Suspect]
     Indication: BRONCHITIS
     Dosage: 160/4.5 MCG , 1 PUFF TWICE DAILY
     Route: 055
  12. SYMBICORT [Suspect]
     Indication: ASTHMA
     Dosage: 160/4.5 MCG , 1 PUFF TWICE DAILY
     Route: 055
  13. SYMBICORT [Suspect]
     Indication: CHRONIC OBSTRUCTIVE PULMONARY DISEASE
     Dosage: 160/4.5 MCG , 1 PUFF TWICE DAILY
     Route: 055
  14. SYMBICORT [Suspect]
     Indication: BRONCHITIS
     Dosage: 160/4.5 MCG , 1 PUFF TWICE DAILY
     Route: 055
  15. SYMBICORT [Suspect]
     Indication: ASTHMA
     Dosage: 160/4.5 MCG , 1 PUFF TWICE DAILY
     Route: 055
  16. SYMBICORT [Suspect]
     Indication: CHRONIC OBSTRUCTIVE PULMONARY DISEASE
     Dosage: 160/4.5 MCG , 1 PUFF TWICE DAILY
     Route: 055
  17. SYMBICORT [Suspect]
     Indication: BRONCHITIS
     Dosage: 160/4.5 MCG , 1 PUFF TWICE DAILY
     Route: 055
  18. SYMBICORT [Suspect]
     Indication: ASTHMA
     Dosage: 160/4.5 MCG , 1 PUFF TWICE DAILY
     Route: 055
  19. SYMBICORT [Suspect]
     Indication: CHRONIC OBSTRUCTIVE PULMONARY DISEASE
     Dosage: 160/4.5 MCG , 1 PUFF TWICE DAILY
     Route: 055
  20. SYMBICORT [Suspect]
     Indication: BRONCHITIS
     Dosage: 160/4.5 MCG , 1 PUFF TWICE DAILY
     Route: 055
  21. SYMBICORT [Suspect]
     Indication: ASTHMA
     Dosage: 160/4.5 MCG , 1 PUFF TWICE DAILY
     Route: 055
  22. SYMBICORT [Suspect]
     Indication: CHRONIC OBSTRUCTIVE PULMONARY DISEASE
     Dosage: 160/4.5 MCG , 1 PUFF TWICE DAILY
     Route: 055
  23. SYMBICORT [Suspect]
     Indication: BRONCHITIS
     Dosage: 160/4.5 MCG , 1 PUFF TWICE DAILY
     Route: 055
  24. SYMBICORT [Suspect]
     Indication: ASTHMA
     Dosage: 160/4.5 MCG , 1 PUFF TWICE DAILY
     Route: 055
  25. SYMBICORT [Suspect]
     Indication: CHRONIC OBSTRUCTIVE PULMONARY DISEASE
     Dosage: 160/4.5 MCG , 1 PUFF TWICE DAILY
     Route: 055
  26. SYMBICORT [Suspect]
     Indication: BRONCHITIS
     Dosage: 160/4.5 MCG , 1 PUFF TWICE DAILY
     Route: 055
  27. SYMBICORT [Suspect]
     Indication: ASTHMA
     Dosage: 160/4.5 MCG , 1 PUFF TWICE DAILY
     Route: 055
  28. SYMBICORT [Suspect]
     Indication: CHRONIC OBSTRUCTIVE PULMONARY DISEASE
     Dosage: 320 BID
     Route: 055
     Dates: start: 2011
  29. SYMBICORT [Suspect]
     Indication: BRONCHITIS
     Dosage: 320 BID
     Route: 055
     Dates: start: 2011
  30. SYMBICORT [Suspect]
     Indication: ASTHMA
     Dosage: 320 BID
     Route: 055
     Dates: start: 2011
  31. SYMBICORT [Suspect]
     Indication: CHRONIC OBSTRUCTIVE PULMONARY DISEASE
     Dosage: 160/4.5 MCG , 1 PUFF TWICE DAILY
     Route: 055
  32. SYMBICORT [Suspect]
     Indication: BRONCHITIS
     Dosage: 160/4.5 MCG , 1 PUFF TWICE DAILY
     Route: 055
  33. SYMBICORT [Suspect]
     Indication: ASTHMA
     Dosage: 160/4.5 MCG , 1 PUFF TWICE DAILY
     Route: 055
  34. SYMBICORT [Suspect]
     Indication: CHRONIC OBSTRUCTIVE PULMONARY DISEASE
     Dosage: 160/4.5 MCG , 1 PUFF TWICE DAILY
     Route: 055
  35. SYMBICORT [Suspect]
     Indication: BRONCHITIS
     Dosage: 160/4.5 MCG , 1 PUFF TWICE DAILY
     Route: 055
  36. SYMBICORT [Suspect]
     Indication: ASTHMA
     Dosage: 160/4.5 MCG , 1 PUFF TWICE DAILY
     Route: 055
  37. SYMBICORT [Suspect]
     Indication: CHRONIC OBSTRUCTIVE PULMONARY DISEASE
     Dosage: 160/4.5 MCG , 2 PUFF BID
     Route: 055
  38. SYMBICORT [Suspect]
     Indication: BRONCHITIS
     Dosage: 160/4.5 MCG , 2 PUFF BID
     Route: 055
  39. SYMBICORT [Suspect]
     Indication: ASTHMA
     Dosage: 160/4.5 MCG , 2 PUFF BID
     Route: 055
  40. SYMBICORT [Suspect]
     Indication: CHRONIC OBSTRUCTIVE PULMONARY DISEASE
     Dosage: 160/4.5 MCG , 2 PUFF BID
     Route: 055
  41. SYMBICORT [Suspect]
     Indication: BRONCHITIS
     Dosage: 160/4.5 MCG , 2 PUFF BID
     Route: 055
  42. SYMBICORT [Suspect]
     Indication: ASTHMA
     Dosage: 160/4.5 MCG , 2 PUFF BID
     Route: 055
  43. SYMBICORT [Suspect]
     Indication: CHRONIC OBSTRUCTIVE PULMONARY DISEASE
     Dosage: 160/4.5 MCG , 2 PUFF BID
     Route: 055
  44. SYMBICORT [Suspect]
     Indication: BRONCHITIS
     Dosage: 160/4.5 MCG , 2 PUFF BID
     Route: 055
  45. SYMBICORT [Suspect]
     Indication: ASTHMA
     Dosage: 160/4.5 MCG , 2 PUFF BID
     Route: 055
  46. SYMBICORT [Suspect]
     Indication: CHRONIC OBSTRUCTIVE PULMONARY DISEASE
     Dosage: 160/4.5 MCG , 2 PUFF BID
     Route: 055
  47. SYMBICORT [Suspect]
     Indication: BRONCHITIS
     Dosage: 160/4.5 MCG , 2 PUFF BID
     Route: 055
  48. SYMBICORT [Suspect]
     Indication: ASTHMA
     Dosage: 160/4.5 MCG , 2 PUFF BID
     Route: 055
  49. SYMBICORT [Suspect]
     Indication: CHRONIC OBSTRUCTIVE PULMONARY DISEASE
     Dosage: 160/4.5 MCG , 2 PUFF BID
     Route: 055
  50. SYMBICORT [Suspect]
     Indication: BRONCHITIS
     Dosage: 160/4.5 MCG , 2 PUFF BID
     Route: 055
  51. SYMBICORT [Suspect]
     Indication: ASTHMA
     Dosage: 160/4.5 MCG , 2 PUFF BID
     Route: 055
  52. SYMBICORT [Suspect]
     Indication: CHRONIC OBSTRUCTIVE PULMONARY DISEASE
     Dosage: 160/4.5 MCG , 2 PUFF BID
     Route: 055
  53. SYMBICORT [Suspect]
     Indication: BRONCHITIS
     Dosage: 160/4.5 MCG , 2 PUFF BID
     Route: 055
  54. SYMBICORT [Suspect]
     Indication: ASTHMA
     Dosage: 160/4.5 MCG , 2 PUFF BID
     Route: 055
  55. SYMBICORT [Suspect]
     Indication: CHRONIC OBSTRUCTIVE PULMONARY DISEASE
     Dosage: 160/4.5 MCG , 2 PUFF BID
     Route: 055
  56. SYMBICORT [Suspect]
     Indication: BRONCHITIS
     Dosage: 160/4.5 MCG , 2 PUFF BID
     Route: 055
  57. SYMBICORT [Suspect]
     Indication: ASTHMA
     Dosage: 160/4.5 MCG , 2 PUFF BID
     Route: 055
  58. SYMBICORT [Suspect]
     Indication: CHRONIC OBSTRUCTIVE PULMONARY DISEASE
     Dosage: 160/4.5 MCG , 2 PUFF BID
     Route: 055
  59. SYMBICORT [Suspect]
     Indication: BRONCHITIS
     Dosage: 160/4.5 MCG , 2 PUFF BID
     Route: 055
  60. SYMBICORT [Suspect]
     Indication: ASTHMA
     Dosage: 160/4.5 MCG , 2 PUFF BID
     Route: 055
  61. SYMBICORT [Suspect]
     Indication: CHRONIC OBSTRUCTIVE PULMONARY DISEASE
     Dosage: 160/4.5 MCG , 1 PUFF TWICE DAILY
     Route: 055
  62. SYMBICORT [Suspect]
     Indication: BRONCHITIS
     Dosage: 160/4.5 MCG , 1 PUFF TWICE DAILY
     Route: 055
  63. SYMBICORT [Suspect]
     Indication: ASTHMA
     Dosage: 160/4.5 MCG , 1 PUFF TWICE DAILY
     Route: 055

REACTIONS (8)
  - Fall [Unknown]
  - Bronchitis [Unknown]
  - Abdominal distension [Unknown]
  - Nasopharyngitis [Recovered/Resolved]
  - Abdominal distension [Unknown]
  - Off label use [Unknown]
  - Circumstance or information capable of leading to medication error [Unknown]
  - Drug dose omission [Unknown]
